FAERS Safety Report 6691187-9 (Version None)
Quarter: 2010Q2

REPORT INFORMATION
  Report Type: 
  Country: None (occurrence: None)
  Receive Date: 20100422
  Receipt Date: 20100414
  Transmission Date: 20101027
  Serious: No
  Sender: FDA-Public Use
  Company Number: US-BIOGENIDEC-2010BI013125

PATIENT
  Sex: Female

DRUGS (26)
  1. TYSABRI [Suspect]
     Indication: MULTIPLE SCLEROSIS
     Route: 042
     Dates: start: 20070101
  2. MARIJUANA [Concomitant]
     Indication: PAIN IN EXTREMITY
  3. MARIJUANA [Concomitant]
  4. MARIJUANA [Concomitant]
     Indication: HYPOAESTHESIA
  5. MARIJUANA [Concomitant]
     Indication: FOOT FRACTURE
  6. MARIJUANA [Concomitant]
     Indication: BACK PAIN
  7. MARIJUANA [Concomitant]
     Indication: NECK PAIN
  8. MARIJUANA [Concomitant]
     Indication: SPINAL COLUMN STENOSIS
  9. MARIJUANA [Concomitant]
     Indication: INTERVERTEBRAL DISC PROTRUSION
  10. MARIJUANA [Concomitant]
     Indication: OEDEMA PERIPHERAL
  11. MARIJUANA [Concomitant]
     Indication: TOBACCO USER
  12. MARIJUANA [Concomitant]
     Indication: MULTIPLE SCLEROSIS RELAPSE
  13. MARIJUANA [Concomitant]
     Indication: CENTRAL NERVOUS SYSTEM LESION
  14. NARCOTICS (NOS) [Concomitant]
     Indication: PAIN IN EXTREMITY
     Route: 048
  15. NARCOTICS (NOS) [Concomitant]
     Route: 048
  16. NARCOTICS (NOS) [Concomitant]
     Indication: HYPOAESTHESIA
     Route: 048
  17. NARCOTICS (NOS) [Concomitant]
     Indication: FOOT FRACTURE
     Route: 048
  18. NARCOTICS (NOS) [Concomitant]
     Indication: BACK PAIN
     Route: 048
  19. NARCOTICS (NOS) [Concomitant]
     Indication: NECK PAIN
     Route: 048
  20. NARCOTICS (NOS) [Concomitant]
     Indication: SPINAL COLUMN STENOSIS
     Route: 048
  21. NARCOTICS (NOS) [Concomitant]
     Indication: INTERVERTEBRAL DISC PROTRUSION
     Route: 048
  22. NARCOTICS (NOS) [Concomitant]
     Indication: OEDEMA PERIPHERAL
     Route: 048
  23. NARCOTICS (NOS) [Concomitant]
     Indication: TOBACCO USER
     Route: 048
  24. NARCOTICS (NOS) [Concomitant]
     Indication: MULTIPLE SCLEROSIS RELAPSE
     Route: 048
  25. NARCOTICS (NOS) [Concomitant]
     Indication: CENTRAL NERVOUS SYSTEM LESION
     Route: 048
  26. NARCOTICS (NOS) [Concomitant]
     Indication: ARTHRITIS
     Route: 048

REACTIONS (4)
  - DEPRESSION [None]
  - DYSSTASIA [None]
  - MIGRAINE [None]
  - SUICIDAL IDEATION [None]
